FAERS Safety Report 9961682 (Version 1)
Quarter: 2014Q1

REPORT INFORMATION
  Report Type: Spontaneous
  Country: US (occurrence: US)
  Receive Date: 20140305
  Receipt Date: 20140305
  Transmission Date: 20141002
  Serious: No
  Sender: FDA-Public Use
  Company Number: US-ABBVIE-13P-163-1110954-00

PATIENT
  Sex: Female
  Weight: 80.81 kg

DRUGS (8)
  1. HUMIRA [Suspect]
     Indication: CROHN^S DISEASE
     Route: 058
     Dates: start: 20130514
  2. CANASA [Concomitant]
     Indication: CROHN^S DISEASE
  3. ASACOL [Concomitant]
     Indication: CROHN^S DISEASE
  4. CORT ENEMA [Concomitant]
     Indication: CROHN^S DISEASE
  5. CRESTOR [Concomitant]
     Indication: HYPERLIPIDAEMIA
  6. HYOSCYAIMINE [Concomitant]
     Indication: ABDOMINAL PAIN
  7. NEXIUM [Concomitant]
     Indication: GASTROOESOPHAGEAL REFLUX DISEASE
  8. PREDNISONE [Concomitant]
     Indication: CROHN^S DISEASE

REACTIONS (3)
  - Injection site pain [Unknown]
  - Injection site pain [Unknown]
  - Injection site reaction [Unknown]
